FAERS Safety Report 11473291 (Version 1)
Quarter: 2015Q3

REPORT INFORMATION
  Report Type: Spontaneous
  Country: DE (occurrence: DE)
  Receive Date: 20150908
  Receipt Date: 20150908
  Transmission Date: 20151125
  Serious: Yes (Hospitalization, Other)
  Sender: FDA-Public Use
  Company Number: DE-JAZZ-2015-DE-001119

PATIENT
  Age: 16 Year
  Sex: Male
  Weight: 84 kg

DRUGS (1)
  1. XYREM [Suspect]
     Active Substance: SODIUM OXYBATE
     Indication: PRODUCT USED FOR UNKNOWN INDICATION
     Dosage: 9.5 G, TOTAL
     Route: 048
     Dates: start: 20150116

REACTIONS (11)
  - Intentional overdose [Recovered/Resolved]
  - Confusional state [Recovered/Resolved]
  - Depersonalisation [Recovered/Resolved]
  - Derealisation [Recovered/Resolved]
  - Judgement impaired [Recovered/Resolved]
  - Suicide attempt [Recovered/Resolved]
  - Suicidal ideation [Recovered/Resolved]
  - Thought blocking [Recovered/Resolved]
  - Disorientation [Recovered/Resolved]
  - Blunted affect [Recovered/Resolved]
  - Product use issue [Unknown]

NARRATIVE: CASE EVENT DATE: 201501
